FAERS Safety Report 10163714 (Version 2)
Quarter: 2014Q2

REPORT INFORMATION
  Report Type: Report from Study
  Country: US (occurrence: US)
  Receive Date: 20140509
  Receipt Date: 20140519
  Transmission Date: 20141212
  Serious: Yes (Hospitalization, Other)
  Sender: FDA-Public Use
  Company Number: US-ABBVIE-14P-163-1231764-00

PATIENT
  Age: 70 Year
  Sex: Female

DRUGS (1)
  1. HUMIRA [Suspect]
     Indication: PSORIASIS
     Route: 058
     Dates: start: 20140226

REACTIONS (5)
  - Hypoaesthesia [Recovering/Resolving]
  - Intervertebral disc operation [Recovering/Resolving]
  - Paraesthesia [Recovering/Resolving]
  - Peripheral vascular disorder [Recovering/Resolving]
  - Psoriasis [Recovering/Resolving]
